FAERS Safety Report 15405775 (Version 1)
Quarter: 2018Q3

REPORT INFORMATION
  Report Type: Spontaneous
  Country: LB (occurrence: LB)
  Receive Date: 20180920
  Receipt Date: 20180920
  Transmission Date: 20181010
  Serious: Yes (Death, Other)
  Sender: FDA-Public Use
  Company Number: LB-JAZZ-2018-LB-013656

PATIENT
  Age: 21 Year
  Sex: Female

DRUGS (5)
  1. VINCRISTINE [Suspect]
     Active Substance: VINCRISTINE
     Indication: T-CELL TYPE ACUTE LEUKAEMIA
     Dosage: 1.5  MG/M2 (CAPPED  AT  2  MG)  WEEKLY  FOR  4  WEEKS
     Dates: start: 20171229
  2. VENETOCLAX. [Suspect]
     Active Substance: VENETOCLAX
     Indication: T-CELL TYPE ACUTE LEUKAEMIA
     Dosage: RAMP?UP TO DOSE OF 400 MG DAILY
     Dates: start: 20180117
  3. ASPARAGINASE [Suspect]
     Active Substance: ASPARAGINASE
     Indication: T-CELL TYPE ACUTE LEUKAEMIA
     Dosage: 6000  UNITS/M3  THREE TIMES WEEKLY FOR NINE DAYS
     Dates: start: 20171229
  4. PREDNISONE. [Suspect]
     Active Substance: PREDNISONE
     Indication: T-CELL TYPE ACUTE LEUKAEMIA
     Dosage: 60 MG/M2, DAILY  FOR 28 DAYS
     Dates: start: 20171229
  5. DAUNORUBICIN [Suspect]
     Active Substance: DAUNORUBICIN
     Indication: T-CELL TYPE ACUTE LEUKAEMIA
     Dosage: 25  MG/M2 WEEKLY  FOR  4  WEEKS
     Dates: start: 20171229

REACTIONS (5)
  - Death [Fatal]
  - Bone marrow failure [Unknown]
  - Mucormycosis [Unknown]
  - Aspergillus infection [Unknown]
  - Anaemia [Unknown]

NARRATIVE: CASE EVENT DATE: 201801
